FAERS Safety Report 20246494 (Version 1)
Quarter: 2021Q4

REPORT INFORMATION
  Report Type: Spontaneous
  Country: US (occurrence: None)
  Receive Date: 20211228
  Receipt Date: 20211228
  Transmission Date: 20220303
  Serious: Yes (Hospitalization)
  Sender: FDA-Public Use
  Company Number: None

PATIENT
  Age: 75 Year
  Sex: Male

DRUGS (6)
  1. TECARTUS [Suspect]
     Active Substance: BREXUCABTAGENE AUTOLEUCEL
     Indication: Mantle cell lymphoma
     Route: 042
     Dates: start: 20210222, end: 20210222
  2. CYTOXAN [Concomitant]
     Active Substance: CYCLOPHOSPHAMIDE
     Dates: start: 20210217, end: 20210219
  3. VANCOMYCIN [Concomitant]
     Active Substance: VANCOMYCIN
     Dates: end: 20210303
  4. CEFEPIME [Concomitant]
     Active Substance: CEFEPIME HYDROCHLORIDE
     Dates: start: 20210221, end: 20210306
  5. XTANDI [Concomitant]
     Active Substance: ENZALUTAMIDE
  6. Levetiracetem [Concomitant]
     Dates: start: 20210219, end: 20210308

REACTIONS (5)
  - Pyrexia [None]
  - Hypotension [None]
  - Fluid intake restriction [None]
  - Atelectasis [None]
  - Pneumonia [None]

NARRATIVE: CASE EVENT DATE: 20210227
